FAERS Safety Report 4911793-9 (Version None)
Quarter: 2006Q1

REPORT INFORMATION
  Report Type: 
  Country: None (occurrence: None)
  Receive Date: 20060213
  Receipt Date: 20060213
  Transmission Date: 20060701
  Serious: Yes (Death, Hospitalization)
  Sender: FDA-Public Use
  Company Number: None

PATIENT
  Sex: Female
  Weight: 90 kg

DRUGS (3)
  1. CYCLOPHOSPHAMIDE [Suspect]
     Indication: BREAST CANCER
     Dosage: 4632 MG
     Dates: start: 20050929, end: 20051111
  2. DOXORUBICIN HCL [Suspect]
     Dosage: 463.2 MG
     Dates: start: 20050929, end: 20051111
  3. PEGFILGRASTIM (NEULASTA) [Suspect]
     Dosage: 24 MG
     Dates: start: 20050930, end: 20051112

REACTIONS (3)
  - COAGULOPATHY [None]
  - CONDITION AGGRAVATED [None]
  - HEPATITIS B [None]
